FAERS Safety Report 19037319 (Version 2)
Quarter: 2023Q1

REPORT INFORMATION
  Report Type: Report from Study
  Country: US (occurrence: None)
  Receive Date: 20210322
  Receipt Date: 20230131
  Transmission Date: 20230418
  Serious: Yes (Other)
  Sender: FDA-Public Use
  Company Number: US-ROCHE-2788736

PATIENT
  Age: 45 Year
  Sex: Female
  Weight: 74.7 kg

DRUGS (4)
  1. PLACEBO [Suspect]
     Active Substance: UNSPECIFIED INGREDIENT
     Indication: Invasive breast carcinoma
     Dosage: LAST TREATMENT OF ATEZOLIZUMAB/PLACEBO RECEIVED ON 4/7/2020
     Route: 042
     Dates: start: 20200204, end: 20200407
  2. TRASTUZUMAB [Suspect]
     Active Substance: TRASTUZUMAB
     Indication: Invasive breast carcinoma
     Dosage: LLOADING DOSE?MAINTENANCE DSOE 6 MG/KG, LAST ADMINISTERED DATE: 28-APR-2020
     Route: 042
     Dates: start: 20200204
  3. PERTUZUMAB [Suspect]
     Active Substance: PERTUZUMAB
     Indication: Invasive breast carcinoma
     Dosage: LLOADING DOSE, FOLLOWED BY MAINTENANCE DOSE 420 MG?AST ADMINISTERED DATE: 28-APR-2020
     Route: 042
     Dates: start: 20200204
  4. PACLITAXEL [Suspect]
     Active Substance: PACLITAXEL
     Indication: Invasive breast carcinoma
     Dosage: LAST ADMINISTERED DATE: 28-APR-2020
     Route: 042
     Dates: start: 20200204

REACTIONS (2)
  - Atrial thrombosis [Recovering/Resolving]
  - Adrenal insufficiency [Recovered/Resolved]

NARRATIVE: CASE EVENT DATE: 20200428
